FAERS Safety Report 10312647 (Version 2)
Quarter: 2014Q3

REPORT INFORMATION
  Report Type: Spontaneous
  Country: GB (occurrence: None)
  Receive Date: 20140716
  Receipt Date: 20140917
  Transmission Date: 20150326
  Serious: Yes (Death, Hospitalization)
  Sender: FDA-Public Use
  Company Number: FK201402729

PATIENT
  Age: 69 Year
  Sex: Male

DRUGS (7)
  1. CARBOPLATIN (MANUFACTURER UNKNOWN) (CARBOPLATIN) (CARBOPLATIN) [Suspect]
     Active Substance: CARBOPLATIN
     Indication: NON-SMALL CELL LUNG CANCER STAGE IV
     Dosage: NOT OTHERWISE SPECIFIED
     Route: 042
     Dates: start: 20130529
  2. AMITRIPTYLINE (AMITRIPTYLINE) [Concomitant]
     Active Substance: AMITRIPTYLINE
  3. FOLIC ACID. [Concomitant]
     Active Substance: FOLIC ACID
  4. ALIMTA [Suspect]
     Active Substance: PEMETREXED DISODIUM
     Indication: NON-SMALL CELL LUNG CANCER STAGE IV
     Dosage: NOT OTHERWISE SPECIFIED
     Route: 042
     Dates: start: 20130529
  5. CORTICOSTEROID [Concomitant]
     Active Substance: CORTICOSTEROID NOS
  6. TRAMADOL (TRAMADOL) [Concomitant]
     Active Substance: TRAMADOL
  7. VITAMIN B12 [Concomitant]
     Active Substance: CYANOCOBALAMIN

REACTIONS (5)
  - Myocardial infarction [None]
  - Atrial fibrillation [None]
  - Off label use [None]
  - Cardiac arrest [None]
  - Sudden death [None]
